FAERS Safety Report 7379199-3 (Version None)
Quarter: 2011Q1

REPORT INFORMATION
  Report Type: 
  Country: None (occurrence: None)
  Receive Date: 20110328
  Receipt Date: 20110324
  Transmission Date: 20110831
  Serious: Yes (Other)
  Sender: FDA-Public Use
  Company Number: US-AMGEN-QUU406173

PATIENT
  Age: 48 Year
  Sex: Female
  Weight: 74.5 kg

DRUGS (10)
  1. DANAZOL [Concomitant]
     Dosage: UNK UNK, UNK
     Dates: start: 20080731
  2. PREDNISONE [Concomitant]
     Dosage: UNK UNK, UNK
     Dates: start: 20080612
  3. LANSOPRAZOLE [Concomitant]
  4. LABETALOL [Concomitant]
  5. CORTICOSTEROID NOS [Concomitant]
     Dosage: UNK UNK, UNK
     Dates: start: 20080621
  6. AMLODIPINE [Concomitant]
  7. CYCLOBENZAPRINE [Concomitant]
  8. MYCOPHENOLATE MOFETIL [Concomitant]
  9. NPLATE [Suspect]
     Indication: IDIOPATHIC THROMBOCYTOPENIC PURPURA
     Dosage: 170 A?G, Q2WK
     Route: 058
     Dates: start: 20080918, end: 20100312
  10. CYANOCOBALAMIN [Concomitant]
     Dosage: UNK UNK, UNK
     Dates: start: 20090710

REACTIONS (1)
  - RED BLOOD CELL SCHISTOCYTES PRESENT [None]
